FAERS Safety Report 11414507 (Version 1)
Quarter: 2015Q3

REPORT INFORMATION
  Report Type: Spontaneous
  Country: CA (occurrence: None)
  Receive Date: 20150824
  Receipt Date: 20150824
  Transmission Date: 20151125
  Serious: No
  Sender: FDA-Public Use
  Company Number: None

PATIENT
  Age: 12 Year
  Sex: Male
  Weight: 67 kg

DRUGS (7)
  1. DAUNORUBICIN [Suspect]
     Active Substance: DAUNORUBICIN
     Indication: FEBRILE NEUTROPENIA
     Dates: end: 20150818
  2. CYTARABINE. [Suspect]
     Active Substance: CYTARABINE
     Dates: end: 20150727
  3. VINCRISTINE SULFATE. [Suspect]
     Active Substance: VINCRISTINE SULFATE
     Dates: end: 20150819
  4. METHOTREXATE [Suspect]
     Active Substance: METHOTREXATE
     Dates: end: 20150803
  5. PREDNISONE. [Suspect]
     Active Substance: PREDNISONE
     Dates: end: 20150819
  6. ONCASPAR [Suspect]
     Active Substance: PEGASPARGASE
     Dates: end: 20150730
  7. DAUNORUBICIN [Suspect]
     Active Substance: DAUNORUBICIN
     Indication: SEPSIS
     Dates: end: 20150818

REACTIONS (11)
  - Computerised tomogram abnormal [None]
  - Splenic haematoma [None]
  - Pyrexia [None]
  - Hypotension [None]
  - Oesophagitis [None]
  - Infection [None]
  - Septic shock [None]
  - Pulse pressure abnormal [None]
  - Tachycardia [None]
  - Coagulopathy [None]
  - Neutropenia [None]

NARRATIVE: CASE EVENT DATE: 20150819
